FAERS Safety Report 9276697 (Version 4)
Quarter: 2014Q3

REPORT INFORMATION
  Report Type: Spontaneous
  Country: DE (occurrence: DE)
  Receive Date: 20130507
  Receipt Date: 20140718
  Transmission Date: 20150326
  Serious: Yes (Hospitalization, Other)
  Sender: FDA-Public Use
  Company Number: PHHY2013DE027876

PATIENT
  Sex: Female

DRUGS (6)
  1. DOXICYCLIN [Concomitant]
     Active Substance: DOXYCYCLINE
     Dosage: UNK UKN, UNK
  2. VALORON//TILIDINE HYDROCHLORIDE [Concomitant]
     Indication: PAIN
     Dosage: UNK UKN, UNK
  3. PARACETAMOL [Concomitant]
     Active Substance: ACETAMINOPHEN
     Indication: PAIN
     Dosage: UNK UKN, UNK
  4. IBUPROFEN. [Concomitant]
     Active Substance: IBUPROFEN
     Indication: PAIN
     Dosage: UNK UKN, UNK
  5. LEPONEX [Suspect]
     Active Substance: CLOZAPINE
     Indication: DEPRESSION
     Dosage: 100 TO 150 MG, PER DAY
  6. LEPONEX [Suspect]
     Active Substance: CLOZAPINE
     Dosage: 100 MG, UNK
     Dates: start: 2007

REACTIONS (6)
  - Small intestinal obstruction [Unknown]
  - Hernia [Not Recovered/Not Resolved]
  - Incision site complication [Unknown]
  - Abdominal pain [Not Recovered/Not Resolved]
  - Vertigo [Unknown]
  - Pneumonia [Unknown]

NARRATIVE: CASE EVENT DATE: 2007
